FAERS Safety Report 9253083 (Version 1)
Quarter: 2013Q2

REPORT INFORMATION
  Report Type: Spontaneous
  Country: US (occurrence: US)
  Receive Date: 20130424
  Receipt Date: 20130424
  Transmission Date: 20140414
  Serious: No
  Sender: FDA-Public Use
  Company Number: US-PFIZER INC-2013127418

PATIENT
  Age: 50 Year
  Sex: Female
  Weight: 90.7 kg

DRUGS (7)
  1. NEURONTIN [Suspect]
     Indication: NEURALGIA
     Dosage: 600 MG, 3X/DAY
     Route: 048
     Dates: start: 2012, end: 2013
  2. NEURONTIN [Suspect]
     Dosage: 600 MG, 1X/DAY
     Route: 048
     Dates: start: 2013
  3. AMITRIPTYLINE [Concomitant]
     Dosage: 100 MG, UNK
  4. LASIX [Concomitant]
     Dosage: 40 MG, UNK
  5. ZANTAC [Concomitant]
     Indication: GASTROOESOPHAGEAL REFLUX DISEASE
     Dosage: 75 MG, UNK
  6. ALBUTEROL [Concomitant]
     Indication: CARDIAC DISORDER
     Dosage: UNK
  7. PROZAC [Concomitant]
     Indication: NEUROPATHY PERIPHERAL
     Dosage: 20 MG, UNK

REACTIONS (8)
  - Memory impairment [Unknown]
  - Mental disorder [Unknown]
  - Pain in extremity [Not Recovered/Not Resolved]
  - Muscle spasms [Not Recovered/Not Resolved]
  - Amnesia [Unknown]
  - Feeling abnormal [Unknown]
  - Dysphonia [Unknown]
  - Rash [Unknown]
